FAERS Safety Report 8417987-2 (Version None)
Quarter: 2012Q2

REPORT INFORMATION
  Report Type: 
  Country: None (occurrence: None)
  Receive Date: 20120531
  Receipt Date: 20120531
  Transmission Date: 20120825
  Serious: Yes (Life-Threatening, Hospitalization, Other)
  Sender: FDA-Public Use
  Company Number: None

PATIENT
  Age: 42 Year
  Sex: Female
  Weight: 116.1208 kg

DRUGS (1)
  1. NITROUS OXIDE UNKNOWN UNKNOWN [Suspect]
     Indication: ANAESTHESIA
     Dosage: INHAL
     Route: 055
     Dates: start: 20101218, end: 20101218

REACTIONS (6)
  - ANAPHYLACTIC REACTION [None]
  - PARAESTHESIA [None]
  - HYPOAESTHESIA [None]
  - MEMORY IMPAIRMENT [None]
  - MUSCLE SPASMS [None]
  - VITAMIN B12 DEFICIENCY [None]
